FAERS Safety Report 14601633 (Version 1)
Quarter: 2018Q1

REPORT INFORMATION
  Report Type: Spontaneous
  Country: IN (occurrence: IN)
  Receive Date: 20180306
  Receipt Date: 20180306
  Transmission Date: 20180509
  Serious: Yes (Death, Other)
  Sender: FDA-Public Use
  Company Number: IN-CIPLA LTD.-2014IN01075

PATIENT

DRUGS (1)
  1. ZOLEDRONIC ACID [Suspect]
     Active Substance: ZOLEDRONIC ACID
     Indication: OSTEOPOROSIS
     Dosage: 5MG/100 ML, I.V. INFUSION
     Route: 042
     Dates: start: 20140610

REACTIONS (4)
  - Myalgia [Unknown]
  - Aplastic anaemia [Fatal]
  - Arthralgia [Unknown]
  - Dysphagia [Unknown]

NARRATIVE: CASE EVENT DATE: 20140610
